FAERS Safety Report 20390446 (Version 2)
Quarter: 2022Q1

REPORT INFORMATION
  Report Type: Spontaneous
  Country: DE (occurrence: DE)
  Receive Date: 20220128
  Receipt Date: 20220301
  Transmission Date: 20220423
  Serious: Yes (Other)
  Sender: FDA-Public Use
  Company Number: DE-002147023-NVSC2022DE006747

PATIENT
  Age: 70 Year
  Sex: Female

DRUGS (1)
  1. TAMOXIFEN [Suspect]
     Active Substance: TAMOXIFEN
     Indication: Breast cancer
     Dosage: UNK
     Route: 065
     Dates: start: 2011

REACTIONS (3)
  - Breast cancer recurrent [Unknown]
  - Metastases to lung [Unknown]
  - Nausea [Unknown]

NARRATIVE: CASE EVENT DATE: 20210101
